FAERS Safety Report 7367564-X (Version None)
Quarter: 2011Q1

REPORT INFORMATION
  Report Type: 
  Country: None (occurrence: None)
  Receive Date: 20110322
  Receipt Date: 20110315
  Transmission Date: 20110831
  Serious: Yes (Other)
  Sender: FDA-Public Use
  Company Number: US-GENZYME-CART-1000063

PATIENT

DRUGS (1)
  1. CARTICEL [Suspect]
     Indication: JOINT INJURY
     Dosage: ONCE
     Route: 014
     Dates: start: 20110103, end: 20110103

REACTIONS (1)
  - BREAST CANCER [None]
